FAERS Safety Report 5176577-8 (Version None)
Quarter: 2006Q4

REPORT INFORMATION
  Report Type: 
  Country: None (occurrence: None)
  Receive Date: 20061215
  Receipt Date: 20060925
  Transmission Date: 20070319
  Serious: Yes (Hospitalization)
  Sender: FDA-Public Use
  Company Number: US-BOEHRINGER INGELHEIM PHARMACEUTICALS, INC.-2006-BP-11270BP

PATIENT
  Sex: Male

DRUGS (8)
  1. APTIVUS/RITONAVIR CAPSULES [Suspect]
     Indication: HIV INFECTION
     Dosage: DAILY DOSE: 500/200 MG BID
     Route: 048
  2. FUZEON [Concomitant]
     Route: 058
  3. NANDROLONE DECANOATE [Concomitant]
     Route: 030
  4. METHADONE HCL [Concomitant]
  5. PRIMIDONE [Concomitant]
  6. DAPSONE [Concomitant]
     Route: 048
  7. TENOFOVIR [Concomitant]
     Route: 048
  8. ABACAVIR [Concomitant]
     Route: 048

REACTIONS (1)
  - HAEMOPTYSIS [None]
